FAERS Safety Report 7777053-6 (Version None)
Quarter: 2011Q3

REPORT INFORMATION
  Report Type: 
  Country: None (occurrence: None)
  Receive Date: 20110926
  Receipt Date: 20110926
  Transmission Date: 20111222
  Serious: Yes (Other)
  Sender: FDA-Public Use
  Company Number: None

PATIENT
  Age: 30 Year
  Sex: Female
  Weight: 70.306 kg

DRUGS (2)
  1. LOESTRIN 24 FE [Suspect]
     Indication: CONTRACEPTION
     Dosage: 1
     Route: 048
     Dates: start: 20110401, end: 20110630
  2. LO LO ESTRIN FE 24 [Concomitant]
     Indication: CONTRACEPTION
     Dosage: 1
     Route: 048
     Dates: start: 20110701, end: 20110823

REACTIONS (8)
  - SKIN ODOUR ABNORMAL [None]
  - VAGINAL POLYP [None]
  - NIGHT SWEATS [None]
  - STRABISMUS [None]
  - DRY SKIN [None]
  - HOT FLUSH [None]
  - ALOPECIA [None]
  - METRORRHAGIA [None]
